FAERS Safety Report 6359843-X (Version None)
Quarter: 2009Q3

REPORT INFORMATION
  Report Type: 
  Country: None (occurrence: None)
  Receive Date: 20090917
  Receipt Date: 20090908
  Transmission Date: 20100115
  Serious: Yes (Hospitalization)
  Sender: FDA-Public Use
  Company Number: B0583259A

PATIENT
  Sex: Male

DRUGS (9)
  1. ZINNAT [Suspect]
     Dosage: 250MG TWICE PER DAY
     Route: 048
     Dates: start: 20090610, end: 20090614
  2. IMODIUM [Suspect]
     Dosage: 2MG VARIABLE DOSE
     Route: 048
     Dates: start: 20090613, end: 20090614
  3. BI-TILDIEM 90 [Suspect]
     Dosage: 180MG PER DAY
     Route: 048
  4. COVERSYL [Suspect]
     Dosage: 4MG PER DAY
     Route: 048
     Dates: end: 20090619
  5. KARDEGIC [Suspect]
     Dosage: 75MG PER DAY
     Route: 048
  6. ELISOR [Suspect]
     Dosage: 20MG PER DAY
     Route: 048
  7. TRANXENE [Suspect]
     Indication: DRUG USE FOR UNKNOWN INDICATION
     Dosage: 5MG PER DAY
     Route: 048
  8. DOLIPRANE [Suspect]
     Indication: DRUG USE FOR UNKNOWN INDICATION
     Dosage: 1G TWICE PER DAY
     Route: 048
  9. STILNOX [Suspect]
     Indication: INSOMNIA
     Dosage: 10MG PER DAY
     Route: 048

REACTIONS (13)
  - ABDOMINAL PAIN LOWER [None]
  - ABDOMINAL PAIN UPPER [None]
  - ABNORMAL FAECES [None]
  - COLITIS ISCHAEMIC [None]
  - DIARRHOEA [None]
  - DIVERTICULUM INTESTINAL [None]
  - ERYTHEMA [None]
  - HAEMANGIOMA [None]
  - HYPERTENSION [None]
  - IRRITABLE BOWEL SYNDROME [None]
  - MUCOSAL ULCERATION [None]
  - OEDEMA MUCOSAL [None]
  - RECTAL HAEMORRHAGE [None]
